FAERS Safety Report 4302109-X (Version None)
Quarter: 2004Q1

REPORT INFORMATION
  Report Type: 
  Country: None (occurrence: None)
  Receive Date: 20040220
  Receipt Date: 20040209
  Transmission Date: 20041129
  Serious: Yes (Disabling)
  Sender: FDA-Public Use
  Company Number: K200400191

PATIENT
  Age: 77 Year
  Sex: Male

DRUGS (2)
  1. ALTACE [Suspect]
     Indication: HYPERTENSION
     Dosage: 10 MG, QD, ORAL
     Route: 048
  2. HYDROXOCOBALAMIN (HYDROXOCOBALAMIN) [Concomitant]

REACTIONS (6)
  - ABDOMINAL PAIN UPPER [None]
  - DYSPNOEA [None]
  - MUSCLE CRAMP [None]
  - PRURITUS [None]
  - URETHRAL PAIN [None]
  - URINE ANALYSIS ABNORMAL [None]
